FAERS Safety Report 12520991 (Version 1)
Quarter: 2016Q2

REPORT INFORMATION
  Report Type: Spontaneous
  Country: US (occurrence: None)
  Receive Date: 20160630
  Receipt Date: 20160630
  Transmission Date: 20160815
  Serious: No
  Sender: FDA-Public Use
  Company Number: None

PATIENT
  Age: 31 Year
  Sex: Female
  Weight: 68.04 kg

DRUGS (6)
  1. PALQUENIL [Concomitant]
  2. MULTI VIT [Concomitant]
  3. VITAMIN B12 [Concomitant]
     Active Substance: CYANOCOBALAMIN
  4. PRISTIQ EXTENDED-RELEASE [Concomitant]
     Active Substance: DESVENLAFAXINE SUCCINATE
  5. PSYLLIUM [Concomitant]
     Active Substance: PLANTAGO SEED
  6. TRIAMCINOLONE ACETONIDE 40 MG INJECTION [Suspect]
     Active Substance: TRIAMCINOLONE ACETONIDE
     Indication: DERMATITIS CONTACT
     Dates: start: 20160222, end: 20160222

REACTIONS (1)
  - Injection site atrophy [None]

NARRATIVE: CASE EVENT DATE: 20160222
